FAERS Safety Report 13407867 (Version 2)
Quarter: 2018Q2

REPORT INFORMATION
  Report Type: Spontaneous
  Country: TR (occurrence: TR)
  Receive Date: 20170406
  Receipt Date: 20180612
  Transmission Date: 20180711
  Serious: Yes (Death, Other)
  Sender: FDA-Public Use
  Company Number: TR-BIOVITRUM-2017TR0338

PATIENT
  Age: 7 Year
  Sex: Male

DRUGS (1)
  1. KINERET [Suspect]
     Active Substance: ANAKINRA
     Indication: STILL^S DISEASE

REACTIONS (2)
  - Interstitial lung disease [Fatal]
  - Histiocytosis haematophagic [Fatal]

NARRATIVE: CASE EVENT DATE: 201609
